FAERS Safety Report 21190686 (Version 1)
Quarter: 2022Q3

REPORT INFORMATION
  Report Type: Spontaneous
  Country: DE (occurrence: DE)
  Receive Date: 20220809
  Receipt Date: 20220809
  Transmission Date: 20221027
  Serious: Yes (Death, Other)
  Sender: FDA-Public Use
  Company Number: DE-AMGEN-DEUSP2022134229

PATIENT
  Sex: Female

DRUGS (7)
  1. BEVACIZUMAB [Suspect]
     Active Substance: BEVACIZUMAB
     Indication: Medulloblastoma
     Dosage: UNK
     Route: 065
  2. FENOFIBRATE [Concomitant]
     Active Substance: FENOFIBRATE
  3. THALIDOMIDE [Concomitant]
     Active Substance: THALIDOMIDE
  4. CELECOXIB [Concomitant]
     Active Substance: CELECOXIB
  5. TOPOTECAN [Concomitant]
     Active Substance: TOPOTECAN HYDROCHLORIDE
  6. TEMOZOLOMIDE [Concomitant]
     Active Substance: TEMOZOLOMIDE
  7. CYTARABINE [Concomitant]
     Active Substance: CYTARABINE

REACTIONS (9)
  - Drug resistance [Fatal]
  - Medulloblastoma [Unknown]
  - Haemoglobin decreased [Unknown]
  - Pleural effusion [Unknown]
  - Off label use [Unknown]
  - Neck pain [Unknown]
  - Pyrexia [Unknown]
  - Pain in extremity [Unknown]
  - C-reactive protein increased [Unknown]
